FAERS Safety Report 4514771-7 (Version None)
Quarter: 2004Q4

REPORT INFORMATION
  Report Type: 
  Country: None (occurrence: None)
  Receive Date: 20041124
  Receipt Date: 20041124
  Transmission Date: 20050328
  Serious: Yes (Hospitalization)
  Sender: FDA-Public Use
  Company Number: None

PATIENT
  Age: 73 Year
  Sex: Male
  Weight: 71.36 kg

DRUGS (1)
  1. EPIPEN [Suspect]
     Dosage: 6.3MG/ML  1 PEN PRN  INTRAVENOUS
     Route: 042
     Dates: start: 20040703, end: 20040703

REACTIONS (2)
  - CHEST PAIN [None]
  - TACHYCARDIA [None]
